FAERS Safety Report 18457901 (Version 2)
Quarter: 2020Q4

REPORT INFORMATION
  Report Type: Spontaneous
  Country: US (occurrence: US)
  Receive Date: 20201103
  Receipt Date: 20201109
  Transmission Date: 20210114
  Serious: Yes (Other)
  Sender: FDA-Public Use
  Company Number: US-PFIZER INC-2020421843

PATIENT
  Age: 76 Year
  Sex: Female
  Weight: 72.57 kg

DRUGS (1)
  1. PREMPRO [Suspect]
     Active Substance: ESTROGENS, CONJUGATED\MEDROXYPROGESTERONE ACETATE
     Indication: HORMONE REPLACEMENT THERAPY
     Dosage: 1 TABLET 1X/DAY (0.625/2.5MG)
     Route: 048

REACTIONS (6)
  - Depression [Unknown]
  - Drug dependence [Unknown]
  - Intentional dose omission [Unknown]
  - Crying [Unknown]
  - Asthenia [Unknown]
  - Amnesia [Unknown]
